FAERS Safety Report 5014498-1 (Version None)
Quarter: 2006Q2

REPORT INFORMATION
  Report Type: 
  Country: None (occurrence: None)
  Receive Date: 20060531
  Receipt Date: 20060516
  Transmission Date: 20061013
  Serious: Yes (Hospitalization)
  Sender: FDA-Public Use
  Company Number: FRWYE627616MAY06

PATIENT
  Age: 67 Year
  Sex: Female
  Weight: 64 kg

DRUGS (5)
  1. ENBREL [Suspect]
     Indication: PUSTULAR PSORIASIS
     Route: 058
     Dates: start: 20041215, end: 20050115
  2. NOVATREX [Suspect]
     Indication: PUSTULAR PSORIASIS
     Dosage: 7.5 MG TOTAL WEEKLY
     Route: 048
     Dates: start: 20041110
  3. REMICADE [Suspect]
     Indication: PUSTULAR PSORIASIS
     Dosage: 300 MG EVERY 1 CYC
     Route: 042
     Dates: start: 20050201
  4. COVERSYL [Concomitant]
     Indication: HYPERTENSION
     Dosage: 4 MG TOTAL DAILY
     Route: 065
     Dates: start: 20041115
  5. TACROLIMUS [Concomitant]
     Indication: PUSTULAR PSORIASIS
     Dosage: UNKNOWN

REACTIONS (6)
  - ANTIPHOSPHOLIPID ANTIBODIES POSITIVE [None]
  - ILIAC ARTERY EMBOLISM [None]
  - INFLUENZA [None]
  - INFLUENZA LIKE ILLNESS [None]
  - SYNCOPE [None]
  - SYNCOPE VASOVAGAL [None]
